FAERS Safety Report 13183899 (Version 1)
Quarter: 2017Q1

REPORT INFORMATION
  Report Type: Spontaneous
  Country: GB (occurrence: GB)
  Receive Date: 20170203
  Receipt Date: 20170203
  Transmission Date: 20170428
  Serious: Yes (Hospitalization)
  Sender: FDA-Public Use
  Company Number: GB-TEVA-733984ACC

PATIENT
  Age: 79 Year
  Sex: Male

DRUGS (4)
  1. ATENOLOL. [Concomitant]
     Active Substance: ATENOLOL
  2. BENDROFLUMETHIAZIDE [Concomitant]
     Active Substance: BENDROFLUMETHIAZIDE
  3. RANITIDINE. [Concomitant]
     Active Substance: RANITIDINE
  4. MEMANTINE. [Suspect]
     Active Substance: MEMANTINE
     Indication: NEUROPSYCHIATRIC SYMPTOMS
     Route: 048
     Dates: start: 201609, end: 20161209

REACTIONS (2)
  - Delusion [Unknown]
  - Hallucination [Recovering/Resolving]

NARRATIVE: CASE EVENT DATE: 201611
